FAERS Safety Report 13807801 (Version 2)
Quarter: 2017Q3

REPORT INFORMATION
  Report Type: Spontaneous
  Country: US (occurrence: US)
  Receive Date: 20170728
  Receipt Date: 20170808
  Transmission Date: 20171127
  Serious: Yes (Other)
  Sender: FDA-Public Use
  Company Number: US-COVIS PHARMA S.A.R.L.-2017COV00047

PATIENT
  Sex: Female
  Weight: 77.98 kg

DRUGS (9)
  1. LYRICA [Suspect]
     Active Substance: PREGABALIN
     Indication: FIBROMYALGIA
     Dosage: UNK
     Route: 048
     Dates: start: 2017
  2. LYRICA [Suspect]
     Active Substance: PREGABALIN
     Indication: NEURALGIA
     Dosage: UNK, 1X/DAY SOMETIMES
  3. OMEPRAZOLE MAGNESIUM. [Suspect]
     Active Substance: OMEPRAZOLE MAGNESIUM
     Dosage: 20 MG, 1X/DAY
     Route: 048
     Dates: start: 2014
  4. SYMBICORT [Suspect]
     Active Substance: BUDESONIDE\FORMOTEROL FUMARATE DIHYDRATE
     Indication: CHRONIC OBSTRUCTIVE PULMONARY DISEASE
     Dosage: 2 DOSAGE UNITS, 2X/DAY
     Route: 055
     Dates: start: 2015
  5. OMEPRAZOLE MAGNESIUM. [Suspect]
     Active Substance: OMEPRAZOLE MAGNESIUM
     Dosage: 20 MG, 2X/DAY
     Route: 048
  6. CITALOPRAM [Concomitant]
     Active Substance: CITALOPRAM HYDROBROMIDE
     Indication: DEPRESSION
     Dosage: UNK
     Route: 048
     Dates: start: 2014
  7. TRAMADOL. [Concomitant]
     Active Substance: TRAMADOL
     Indication: HEADACHE
     Dosage: UNK
     Route: 048
     Dates: start: 2016
  8. TRAMADOL. [Concomitant]
     Active Substance: TRAMADOL
     Indication: NECK PAIN
  9. SINGULAIR [Concomitant]
     Active Substance: MONTELUKAST SODIUM
     Indication: HYPERSENSITIVITY
     Dosage: UNK
     Route: 048
     Dates: start: 2017

REACTIONS (13)
  - Vision blurred [Unknown]
  - Neuralgia [Unknown]
  - Chronic obstructive pulmonary disease [Unknown]
  - Fibromyalgia [Unknown]
  - Dyspnoea [Unknown]
  - Rhinorrhoea [Unknown]
  - Somnolence [Unknown]
  - Hypersensitivity [Unknown]
  - Sinus headache [Unknown]
  - Incorrect drug administration duration [Not Recovered/Not Resolved]
  - Feeling abnormal [Unknown]
  - Drug dose omission [Unknown]
  - Cough [Unknown]

NARRATIVE: CASE EVENT DATE: 2014
